FAERS Safety Report 24322980 (Version 1)
Quarter: 2024Q3

REPORT INFORMATION
  Report Type: Spontaneous
  Country: US (occurrence: None)
  Receive Date: 20240914
  Receipt Date: 20240914
  Transmission Date: 20241017
  Serious: Yes (Death, Hospitalization)
  Sender: Public
  Company Number: None

PATIENT
  Age: 61 Year
  Sex: Male
  Weight: 115 kg

DRUGS (5)
  1. FLUOROURACIL [Suspect]
     Active Substance: FLUOROURACIL
  2. IRINOTECAN (CPT-11, CAMPTOSAR [Concomitant]
  3. LEUCOVORIN CALCIUM [Concomitant]
     Active Substance: LEUCOVORIN CALCIUM
  4. NIVOLUMAB [Concomitant]
     Active Substance: NIVOLUMAB
  5. ELOXATIN [Concomitant]
     Active Substance: OXALIPLATIN

REACTIONS (9)
  - Infusion related reaction [None]
  - Febrile neutropenia [None]
  - Blood lactic acid increased [None]
  - Sepsis [None]
  - Oedema peripheral [None]
  - Renal impairment [None]
  - Unresponsive to stimuli [None]
  - Vomiting [None]
  - Pulse absent [None]

NARRATIVE: CASE EVENT DATE: 20240823
